FAERS Safety Report 15666528 (Version 1)
Quarter: 2018Q4

REPORT INFORMATION
  Report Type: Spontaneous
  Country: US (occurrence: US)
  Receive Date: 20181128
  Receipt Date: 20181128
  Transmission Date: 20190205
  Serious: No
  Sender: FDA-Public Use
  Company Number: US-ROCHE-2112781

PATIENT
  Age: 53 Year
  Sex: Female
  Weight: 49.03 kg

DRUGS (5)
  1. OCREVUS [Suspect]
     Active Substance: OCRELIZUMAB
     Indication: MULTIPLE SCLEROSIS
     Dosage: FIRST OCREVUS INFUSION ;ONGOING: NO
     Route: 041
     Dates: start: 201704, end: 201704
  2. OCREVUS [Suspect]
     Active Substance: OCRELIZUMAB
     Dosage: FIRST FULL OCREVUS DOSE; ONGOING: YES
     Route: 041
     Dates: start: 201712
  3. OCREVUS [Suspect]
     Active Substance: OCRELIZUMAB
     Dosage: SECOND OCREVUS INFUSION ;ONGOING: NO
     Route: 041
     Dates: start: 201705, end: 201705
  4. PROVIGIL [Concomitant]
     Active Substance: MODAFINIL
     Indication: FATIGUE
     Dosage: ONGOING: YES
     Route: 048
  5. MYRBETRIC [Concomitant]
     Indication: HYPERTONIC BLADDER
     Dosage: ONGOING: YES
     Route: 048

REACTIONS (5)
  - Myalgia [Recovered/Resolved]
  - Pain [Recovered/Resolved]
  - Muscle spasms [Recovered/Resolved]
  - Bone pain [Recovered/Resolved]
  - Arthralgia [Recovered/Resolved]

NARRATIVE: CASE EVENT DATE: 201705
